FAERS Safety Report 5296477-2 (Version None)
Quarter: 2007Q2

REPORT INFORMATION
  Report Type: 
  Country: None (occurrence: None)
  Receive Date: 20070413
  Receipt Date: 20070410
  Transmission Date: 20071010
  Serious: Yes (Hospitalization)
  Sender: FDA-Public Use
  Company Number: FRWYE406810APR07

PATIENT
  Sex: Female
  Weight: 54 kg

DRUGS (6)
  1. ADVIL [Suspect]
     Indication: FACE OEDEMA
     Route: 048
     Dates: start: 20070113, end: 20070113
  2. DOLIPRANE [Concomitant]
     Indication: PAIN IN JAW
     Dosage: UNKNOWN
     Dates: start: 20070112
  3. ORACILLINE [Concomitant]
  4. VENTOLIN [Concomitant]
     Dosage: IF NECESSARY
  5. SPECIAFOLDINE [Concomitant]
  6. TORENTAL [Concomitant]

REACTIONS (5)
  - CELLULITIS [None]
  - CONJUNCTIVITIS [None]
  - INDURATION [None]
  - SINUSITIS [None]
  - TRISMUS [None]
